FAERS Safety Report 8355837-3 (Version None)
Quarter: 2012Q2

REPORT INFORMATION
  Report Type: 
  Country: None (occurrence: None)
  Receive Date: 20120514
  Receipt Date: 20120513
  Transmission Date: 20120825
  Serious: No
  Sender: FDA-Public Use
  Company Number: US-PFIZER INC-2012115858

PATIENT
  Sex: Female
  Weight: 90.249 kg

DRUGS (5)
  1. NORVASC [Concomitant]
     Indication: HYPERTENSION
     Dosage: 5 MG,DAILY
  2. CHANTIX [Suspect]
     Indication: SMOKING CESSATION THERAPY
     Dosage: 0.5 MG, DAILY
     Dates: start: 20090101, end: 20090101
  3. ATENOLOL [Concomitant]
     Indication: HYPERTENSION
     Dosage: 50 MG,DAILY
  4. CHANTIX [Suspect]
     Dosage: UNK
     Dates: start: 20090101
  5. LISINOPRIL [Concomitant]
     Dosage: UNK

REACTIONS (3)
  - HUNGER [None]
  - NAUSEA [None]
  - DRUG INTOLERANCE [None]
